FAERS Safety Report 9737074 (Version 1)
Quarter: 2013Q4

REPORT INFORMATION
  Report Type: Report from Study
  Country: TH (occurrence: TH)
  Receive Date: 20131206
  Receipt Date: 20131206
  Transmission Date: 20140711
  Serious: Yes (Death)
  Sender: FDA-Public Use
  Company Number: TH-BAXTER-2013BAX048964

PATIENT
  Sex: 0

DRUGS (8)
  1. ENDOXAN 1 G [Suspect]
     Indication: SYSTEMIC LUPUS ERYTHEMATOSUS
     Dosage: 500 MG/BODY SURFACE AREA
     Route: 042
  2. ENDOXAN 1 G [Suspect]
     Dosage: 750 MG/BODY SURFACE AREA
     Route: 042
  3. ENDOXAN 1 G [Suspect]
     Dosage: 1000 MG/BODY SURFACE AREA
     Route: 042
  4. 5 PERCENT DEXTROSE INJ USP [Suspect]
     Indication: PRODUCT USED FOR UNKNOWN INDICATION
  5. 0.45 PERCENT SODIUM CHLORIDE INJ USP [Suspect]
     Indication: DEHYDRATION
     Dosage: 2000 ML/M2 2 FOR 24 HOURS
     Route: 042
  6. 0.45 PERCENT SODIUM CHLORIDE INJ USP [Suspect]
     Indication: PROPHYLAXIS
  7. PREDNISOLONE [Suspect]
     Indication: PRODUCT USED FOR UNKNOWN INDICATION
     Route: 048
  8. METHYLPREDNISOLONE [Suspect]
     Indication: PRODUCT USED FOR UNKNOWN INDICATION
     Route: 065

REACTIONS (1)
  - Renal failure acute [Fatal]
